FAERS Safety Report 4804844-3 (Version None)
Quarter: 2005Q4

REPORT INFORMATION
  Report Type: 
  Country: None (occurrence: None)
  Receive Date: 20051017
  Receipt Date: 20051003
  Transmission Date: 20060501
  Serious: Yes (Other)
  Sender: FDA-Public Use
  Company Number: HQWYE577727JUL05

PATIENT
  Age: 54 Year
  Sex: Female
  Weight: 55.84 kg

DRUGS (2)
  1. PREMPRO [Suspect]
     Indication: HORMONE REPLACEMENT THERAPY
     Dosage: 0.625MG/2.5MG EVERY 4 DAYS
     Dates: start: 20030701
  2. REMIFEMIN (CIMICIFUGA) [Concomitant]

REACTIONS (15)
  - ADNEXA UTERI CYST [None]
  - ANTINUCLEAR ANTIBODY POSITIVE [None]
  - ARTHROPATHY [None]
  - BACK PAIN [None]
  - BURSITIS [None]
  - CERVICAL SPINE FLATTENING [None]
  - CONNECTIVE TISSUE DISORDER [None]
  - FACET JOINT SYNDROME [None]
  - INTERVERTEBRAL DISC DEGENERATION [None]
  - MOBILITY DECREASED [None]
  - MUSCLE SPASMS [None]
  - MUSCULOSKELETAL STIFFNESS [None]
  - OVARIAN CYST [None]
  - SPINAL COLUMN STENOSIS [None]
  - UTERINE LEIOMYOMA [None]
